FAERS Safety Report 24981676 (Version 2)
Quarter: 2025Q2

REPORT INFORMATION
  Report Type: Spontaneous
  Country: US (occurrence: US)
  Receive Date: 20250218
  Receipt Date: 20250508
  Transmission Date: 20250716
  Serious: Yes (Other)
  Sender: ADMA BIOLOGICS
  Company Number: US-ADMA BIOLOGICS INC.-US-2025ADM000057

PATIENT
  Age: 20 Year
  Sex: Male

DRUGS (1)
  1. HUMAN IMMUNOGLOBULIN G [Suspect]
     Active Substance: HUMAN IMMUNOGLOBULIN G
     Indication: Acute disseminated encephalomyelitis
     Route: 042

REACTIONS (11)
  - Klebsiella sepsis [Unknown]
  - Klebsiella urinary tract infection [Unknown]
  - C3 glomerulopathy [Unknown]
  - Immune thrombocytopenia [Unknown]
  - Thrombotic microangiopathy [Unknown]
  - Kidney fibrosis [Unknown]
  - Renal tubular atrophy [Unknown]
  - Autoimmune haemolytic anaemia [Unknown]
  - Acute kidney injury [Unknown]
  - Proteinuria [Unknown]
  - Off label use [Unknown]
